FAERS Safety Report 7688063-1 (Version None)
Quarter: 2011Q3

REPORT INFORMATION
  Report Type: 
  Country: None (occurrence: None)
  Receive Date: 20110817
  Receipt Date: 20110815
  Transmission Date: 20111222
  Serious: Yes (Hospitalization)
  Sender: FDA-Public Use
  Company Number: CHPA2011US10740

PATIENT
  Sex: Female

DRUGS (1)
  1. VOLTAREN [Suspect]
     Indication: ARTHRITIS
     Dosage: UNK, UNK
     Route: 061

REACTIONS (6)
  - THROMBOSIS [None]
  - DRUG INEFFECTIVE [None]
  - WRONG TECHNIQUE IN DRUG USAGE PROCESS [None]
  - OEDEMA PERIPHERAL [None]
  - DRUG ADMINISTERED AT INAPPROPRIATE SITE [None]
  - ERYTHEMA [None]
